FAERS Safety Report 6676164-6 (Version None)
Quarter: 2010Q1

REPORT INFORMATION
  Report Type: 
  Country: None (occurrence: None)
  Receive Date: 20100331
  Receipt Date: 20090602
  Transmission Date: 20100710
  Serious: Yes (Other)
  Sender: FDA-Public Use
  Company Number: 2009222598

PATIENT
  Age: 70 Year
  Sex: Male
  Weight: 101.2 kg

DRUGS (9)
  1. SUTENT [Suspect]
     Indication: RENAL CELL CARCINOMA
     Dosage: 50 MG, 1X/DAY
     Dates: start: 20090430, end: 20090501
  2. INSULIN (INSULIN) [Concomitant]
  3. LANTUS [Concomitant]
  4. ZOLOFT [Concomitant]
  5. WARFARIN SODIUM [Concomitant]
  6. DILTIAZEM [Concomitant]
  7. METOPROLOL (METOPROLOL) [Concomitant]
  8. LISINOPRIL [Concomitant]
  9. MORPHINE [Concomitant]

REACTIONS (4)
  - ANAEMIA [None]
  - LEUKOPENIA [None]
  - NEUTROPHIL COUNT [None]
  - THROMBOCYTOPENIA [None]
